FAERS Safety Report 4338293-1 (Version None)
Quarter: 2004Q2

REPORT INFORMATION
  Report Type: 
  Country: None (occurrence: None)
  Receive Date: 20040409
  Receipt Date: 20040405
  Transmission Date: 20050107
  Serious: Yes (Hospitalization, Other)
  Sender: FDA-Public Use
  Company Number: HQWYE353905APR04

PATIENT
  Sex: Female

DRUGS (2)
  1. CEFIXORAL (CEFIXIME, TABLET) [Suspect]
     Indication: OTITIS MEDIA
     Dosage: 1 TABLET DAILY ORAL
     Route: 048
     Dates: start: 20040305, end: 20040309
  2. PREDNISONE [Concomitant]

REACTIONS (1)
  - EXANTHEM [None]
